FAERS Safety Report 5302209-1 (Version None)
Quarter: 2007Q2

REPORT INFORMATION
  Report Type: 
  Country: None (occurrence: None)
  Receive Date: 20070419
  Receipt Date: 20070409
  Transmission Date: 20071010
  Serious: Yes (Life-Threatening, Hospitalization)
  Sender: FDA-Public Use
  Company Number: JP-MERCK-0703USA02417

PATIENT
  Age: 73 Year
  Sex: Male

DRUGS (7)
  1. PEPCID RPD [Suspect]
     Indication: DUODENAL ULCER
     Route: 048
     Dates: start: 20061217, end: 20070212
  2. CEFOPERAZONE SODIUM AND SULBACTAM SODIUM [Concomitant]
     Route: 065
  3. PROMAC [Suspect]
     Indication: DUODENAL ULCER
     Route: 048
  4. ALLOPURINOL [Concomitant]
     Route: 065
  5. NORVASC [Concomitant]
     Route: 065
  6. ZANTAC [Suspect]
     Indication: CHOLECYSTITIS
     Route: 065
     Dates: start: 20070215, end: 20070221
  7. FLIVAS [Concomitant]
     Route: 065

REACTIONS (1)
  - LIVER DISORDER [None]
